FAERS Safety Report 5053487-8 (Version None)
Quarter: 2006Q3

REPORT INFORMATION
  Report Type: 
  Country: None (occurrence: None)
  Receive Date: 20060712
  Receipt Date: 20060629
  Transmission Date: 20061208
  Serious: Yes (Hospitalization, Other)
  Sender: FDA-Public Use
  Company Number: 2006081637

PATIENT
  Age: 50 Year
  Sex: Male

DRUGS (1)
  1. VIAGRA [Suspect]
     Indication: ERECTILE DYSFUNCTION
     Dosage: 50 MG (50 MG, EVERY 3 TO 4 DAYS), ORAL
     Route: 048
     Dates: start: 20050101

REACTIONS (9)
  - CONDITION AGGRAVATED [None]
  - DISORDER OF ORBIT [None]
  - EYE DISORDER [None]
  - INTRAOCULAR PRESSURE INCREASED [None]
  - OPEN ANGLE GLAUCOMA [None]
  - OPTIC ATROPHY [None]
  - RETINAL DISORDER [None]
  - SCOTOMA [None]
  - VISION BLURRED [None]
